FAERS Safety Report 22803445 (Version 4)
Quarter: 2024Q4

REPORT INFORMATION
  Report Type: Spontaneous
  Country: CA (occurrence: CA)
  Receive Date: 20230809
  Receipt Date: 20241202
  Transmission Date: 20250115
  Serious: Yes (Other)
  Sender: PFIZER
  Company Number: CA-PFIZER INC-2017239790

PATIENT
  Age: 9 Year
  Sex: Female
  Weight: 44.6 kg

DRUGS (13)
  1. SOMATROPIN [Suspect]
     Active Substance: SOMATROPIN
     Indication: Growth hormone deficiency
     Dosage: 0.8 MG, 6 DAYS PER WEEK
     Route: 058
     Dates: start: 20170517
  2. SOMATROPIN [Suspect]
     Active Substance: SOMATROPIN
     Dosage: 1 MG, 6 DAYS PER WEEK
     Route: 058
     Dates: start: 20170517
  3. SOMATROPIN [Suspect]
     Active Substance: SOMATROPIN
     Dosage: 1.05 MG, 6 DAYS PER WEEK
     Route: 058
  4. SOMATROPIN [Suspect]
     Active Substance: SOMATROPIN
     Dosage: 1.35 MG, 6 DAYS PER WEEK
     Route: 058
  5. SOMATROPIN [Suspect]
     Active Substance: SOMATROPIN
     Dosage: 1.5 MG FOR 4 DAYS AND 1.65 MG FOR 2 DAYS WITH GOQUICK PEN
  6. SOMATROPIN [Suspect]
     Active Substance: SOMATROPIN
     Dosage: 1 MG, 6 DAYS PER WEEK
     Route: 058
  7. SOMATROPIN [Suspect]
     Active Substance: SOMATROPIN
     Dosage: 1.35 MG, 6 DAYS PER WEEK
     Route: 058
  8. SOMATROPIN [Suspect]
     Active Substance: SOMATROPIN
     Dosage: 1650 UG, 6 DAYS PER WEEK
     Route: 058
  9. ESTROGENS [Concomitant]
     Active Substance: ESTROGENS
     Indication: Hormone replacement therapy
     Dosage: 0.5 MG
  10. DESMOPRESSIN [Concomitant]
     Active Substance: DESMOPRESSIN
     Dosage: 1 DF (0.2 MG AM, 0.1 MG LUNCH, 0.2 MG PM)
     Route: 048
  11. PEDIAPRED [Concomitant]
     Active Substance: PREDNISOLONE SODIUM PHOSPHATE
     Dosage: 1 DF (0.7 MG AM AND 0.5 MG PM)
     Route: 048
  12. SYNTHROID [Concomitant]
     Active Substance: LEVOTHYROXINE SODIUM
     Dosage: 0.005 MG, 1X/DAY
     Route: 048
  13. SYNTHROID [Concomitant]
     Active Substance: LEVOTHYROXINE SODIUM
     Dosage: 0.005 MG, 1X/DAY
     Route: 048

REACTIONS (4)
  - Acromegaly [Unknown]
  - Glucose tolerance impaired [Not Recovered/Not Resolved]
  - Incorrect dose administered [Unknown]
  - Product dispensing error [Unknown]
